FAERS Safety Report 11312312 (Version 1)
Quarter: 2015Q3

REPORT INFORMATION
  Report Type: Spontaneous
  Country: US (occurrence: None)
  Receive Date: 20150724
  Receipt Date: 20150724
  Transmission Date: 20151125
  Serious: No
  Sender: FDA-Public Use
  Company Number: None

PATIENT
  Age: 32 Year
  Sex: Female

DRUGS (2)
  1. CLINDAMYCIN [Suspect]
     Active Substance: CLINDAMYCIN\CLINDAMYCIN PHOSPHATE
     Indication: INFECTION
     Route: 042
     Dates: start: 20150409, end: 20150410
  2. MAGNESIUM SULFATE. [Suspect]
     Active Substance: MAGNESIUM SULFATE
     Dosage: 2 GRAM/HOUR, CONTINOUS IV
     Route: 042

REACTIONS (3)
  - Flushing [None]
  - Rash [None]
  - Maternal exposure during delivery [None]

NARRATIVE: CASE EVENT DATE: 20150410
